FAERS Safety Report 18499329 (Version 2)
Quarter: 2021Q2

REPORT INFORMATION
  Report Type: Spontaneous
  Country: US (occurrence: US)
  Receive Date: 20201113
  Receipt Date: 20210525
  Transmission Date: 20210717
  Serious: No
  Sender: FDA-Public Use
  Company Number: US-TEVA-2020-US-1847461

PATIENT
  Sex: Female

DRUGS (1)
  1. AJOVY [Suspect]
     Active Substance: FREMANEZUMAB-VFRM
     Dosage: 225 MG/1.5ML AUTOINJECTOR
     Route: 065

REACTIONS (4)
  - Pain [Unknown]
  - Migraine [Unknown]
  - Incorrect dose administered by device [Unknown]
  - Device leakage [Unknown]
